FAERS Safety Report 12351826 (Version 2)
Quarter: 2016Q3

REPORT INFORMATION
  Report Type: Spontaneous
  Country: AU (occurrence: AU)
  Receive Date: 20160510
  Receipt Date: 20160705
  Transmission Date: 20161109
  Serious: Yes (Other)
  Sender: FDA-Public Use
  Company Number: AU-AMGEN-AUSSP2016057328

PATIENT
  Age: 88 Year
  Sex: Female

DRUGS (11)
  1. MOBIC [Concomitant]
     Active Substance: MELOXICAM
  2. NEXIUM [Concomitant]
     Active Substance: ESOMEPRAZOLE MAGNESIUM
  3. PROLIA [Suspect]
     Active Substance: DENOSUMAB
     Indication: PRODUCT USED FOR UNKNOWN INDICATION
     Dosage: UNK
     Route: 065
  4. AVAPRO [Concomitant]
     Active Substance: IRBESARTAN
  5. MOVICOL [Concomitant]
     Active Substance: POLYETHYLENE GLYCOL 3350\POTASSIUM CHLORIDE\SODIUM BICARBONATE\SODIUM CHLORIDE
  6. PANADOL [Concomitant]
     Active Substance: ACETAMINOPHEN
  7. SEREPAX [Concomitant]
     Active Substance: OXAZEPAM
  8. VAGIFEM [Concomitant]
     Active Substance: ESTRADIOL
  9. PLAVIX [Concomitant]
     Active Substance: CLOPIDOGREL BISULFATE
  10. TARGIN [Concomitant]
     Active Substance: NALOXONE HYDROCHLORIDE\OXYCODONE HYDROCHLORIDE
  11. ASPIRIN. [Concomitant]
     Active Substance: ASPIRIN

REACTIONS (8)
  - Hypertension [Unknown]
  - Osteoarthritis [Unknown]
  - Hip fracture [Unknown]
  - Anxiety [Unknown]
  - Transient ischaemic attack [Unknown]
  - Fall [Unknown]
  - Hypercholesterolaemia [Unknown]
  - Gastrooesophageal reflux disease [Unknown]

NARRATIVE: CASE EVENT DATE: 20160428
